FAERS Safety Report 7998480-8 (Version None)
Quarter: 2011Q4

REPORT INFORMATION
  Report Type: 
  Country: None (occurrence: None)
  Receive Date: 20111221
  Receipt Date: 20111209
  Transmission Date: 20120403
  Serious: Yes (Hospitalization)
  Sender: FDA-Public Use
  Company Number: US-ELI_LILLY_AND_COMPANY-US201111003168

PATIENT
  Sex: Female
  Weight: 70.91 kg

DRUGS (3)
  1. CISPLATIN [Suspect]
     Indication: NON-SMALL CELL LUNG CANCER
     Dosage: 75 MG/M2, OVER 60 MIN ON DAY 1
     Route: 042
     Dates: start: 20110511
  2. BEVACIZUMAB [Suspect]
     Indication: NON-SMALL CELL LUNG CANCER
     Dosage: 15 MG/KG, OVER 30-90 MIN ON DAY 1
     Route: 042
     Dates: start: 20110511
  3. GEMCITABINE HYDROCHLORIDE [Suspect]
     Indication: NON-SMALL CELL LUNG CANCER
     Dosage: 1200 MG/M2, DAYS 1 AND 8
     Route: 042
     Dates: start: 20090511

REACTIONS (6)
  - ABDOMINAL PAIN [None]
  - LARGE INTESTINE PERFORATION [None]
  - FATIGUE [None]
  - LYMPHOCYTE COUNT DECREASED [None]
  - WHITE BLOOD CELL COUNT DECREASED [None]
  - LUNG INFECTION [None]
